FAERS Safety Report 13299746 (Version 1)
Quarter: 2017Q1

REPORT INFORMATION
  Report Type: Spontaneous
  Country: GB (occurrence: GB)
  Receive Date: 20170306
  Receipt Date: 20170306
  Transmission Date: 20170428
  Serious: Yes (Other)
  Sender: FDA-Public Use
  Company Number: GB-BAUSCH-BL-2017-005416

PATIENT
  Age: 81 Year
  Sex: Male

DRUGS (2)
  1. TIMOLOL MALEATE. [Suspect]
     Active Substance: TIMOLOL MALEATE
     Indication: OCULAR HYPERTENSION
     Dosage: EACH EYE ON AN EVENING
     Route: 047
     Dates: start: 20161029, end: 20170214
  2. LACIDIPINE [Concomitant]
     Active Substance: LACIDIPINE
     Indication: HYPERTENSION

REACTIONS (4)
  - Skin exfoliation [Not Recovered/Not Resolved]
  - Rash [Not Recovered/Not Resolved]
  - Urinary incontinence [Not Recovered/Not Resolved]
  - Peripheral swelling [Not Recovered/Not Resolved]

NARRATIVE: CASE EVENT DATE: 20170212
